FAERS Safety Report 5908409-1 (Version None)
Quarter: 2008Q4

REPORT INFORMATION
  Report Type: 
  Country: None (occurrence: None)
  Receive Date: 20081006
  Receipt Date: 20080925
  Transmission Date: 20090506
  Serious: Yes (Other)
  Sender: FDA-Public Use
  Company Number: FR-JNJFOC-20070802132

PATIENT
  Sex: Male
  Weight: 79.5 kg

DRUGS (10)
  1. TMC125 [Suspect]
     Indication: HIV INFECTION
     Route: 048
  2. PREZISTA [Suspect]
     Indication: HIV INFECTION
     Route: 048
  3. NORVIR [Suspect]
     Indication: HIV INFECTION
     Route: 048
  4. MK-0518 [Suspect]
     Indication: HIV INFECTION
     Route: 048
  5. VIREAD [Concomitant]
     Indication: HIV INFECTION
     Route: 048
  6. ZIAGEN [Concomitant]
     Indication: HIV INFECTION
     Route: 048
  7. APPROVEL [Concomitant]
     Indication: HYPERTENSION
  8. BACTRIM [Concomitant]
     Indication: PROPHYLAXIS
     Route: 048
  9. ATHYMIL [Concomitant]
     Indication: DEPRESSION
  10. ATARAX [Concomitant]
     Indication: DEPRESSION

REACTIONS (3)
  - ASPARTATE AMINOTRANSFERASE INCREASED [None]
  - BLOOD CREATINE PHOSPHOKINASE INCREASED [None]
  - BLOOD LACTATE DEHYDROGENASE INCREASED [None]
